FAERS Safety Report 12197510 (Version 2)
Quarter: 2018Q3

REPORT INFORMATION
  Report Type: Spontaneous
  Country: BR (occurrence: BR)
  Receive Date: 20160322
  Receipt Date: 20180920
  Transmission Date: 20181010
  Serious: Yes (Other)
  Sender: FDA-Public Use
  Company Number: BR-009507513-1603BRA008902

PATIENT
  Age: 30 Year
  Sex: Female
  Weight: 64 kg

DRUGS (1)
  1. NUVARING [Suspect]
     Active Substance: ETHINYL ESTRADIOL\ETONOGESTREL
     Indication: CONTRACEPTION
     Dosage: 3 WEEKS OF USE AND 1 WEEK OF PAUSE, CYCLICAL
     Route: 067
     Dates: start: 2001, end: 2011

REACTIONS (2)
  - Maternal exposure before pregnancy [Recovered/Resolved]
  - Abnormal labour [Unknown]

NARRATIVE: CASE EVENT DATE: 20120222
